FAERS Safety Report 17448696 (Version 1)
Quarter: 2020Q1

REPORT INFORMATION
  Report Type: Spontaneous
  Country: IT (occurrence: IT)
  Receive Date: 20200224
  Receipt Date: 20200224
  Transmission Date: 20200409
  Serious: Yes (Hospitalization)
  Sender: FDA-Public Use
  Company Number: IT-UNICHEM PHARMACEUTICALS (USA) INC-UCM202002-000218

PATIENT
  Age: 49 Year
  Sex: Female

DRUGS (3)
  1. TRAMADOL HCL [Suspect]
     Active Substance: TRAMADOL HYDROCHLORIDE
     Indication: INTENTIONAL OVERDOSE
  2. VALPROIC ACID. [Concomitant]
     Active Substance: VALPROIC ACID
     Indication: SEIZURE
  3. PREGABALIN. [Concomitant]
     Active Substance: PREGABALIN
     Indication: SEIZURE

REACTIONS (12)
  - Intentional overdose [Unknown]
  - Mydriasis [Recovered/Resolved]
  - Drug level increased [Recovered/Resolved]
  - Acidosis [Recovered/Resolved]
  - Acute kidney injury [Recovering/Resolving]
  - Shock [Recovered/Resolved]
  - Left ventricular dysfunction [Recovered/Resolved]
  - Loss of consciousness [Recovered/Resolved]
  - Toxicity to various agents [Recovered/Resolved]
  - Mitral valve incompetence [Recovered/Resolved]
  - Metabolic encephalopathy [Recovered/Resolved]
  - Hepatic failure [Recovered/Resolved]
